FAERS Safety Report 6743649-3 (Version None)
Quarter: 2010Q2

REPORT INFORMATION
  Report Type: 
  Country: None (occurrence: None)
  Receive Date: 20100527
  Receipt Date: 20100518
  Transmission Date: 20101027
  Serious: Yes (Hospitalization)
  Sender: FDA-Public Use
  Company Number: US-JNJFOC-20100405090

PATIENT
  Sex: Male
  Weight: 167.83 kg

DRUGS (5)
  1. IBUPROFEN [Suspect]
     Indication: NEUROPATHY PERIPHERAL
  2. NEURONTIN [Suspect]
     Indication: NEUROPATHY PERIPHERAL
  3. AMITRIPTYLINE [Suspect]
     Indication: NEUROPATHY PERIPHERAL
  4. LISINOPRIL [Concomitant]
     Indication: CARDIAC FAILURE CONGESTIVE
  5. LASIX [Concomitant]
     Indication: CARDIAC FAILURE CONGESTIVE

REACTIONS (4)
  - HYPOAESTHESIA [None]
  - PARAESTHESIA [None]
  - TREMOR [None]
  - WEIGHT INCREASED [None]
